FAERS Safety Report 8185064-4 (Version None)
Quarter: 2012Q1

REPORT INFORMATION
  Report Type: 
  Country: None (occurrence: None)
  Receive Date: 20120305
  Receipt Date: 20120229
  Transmission Date: 20120608
  Serious: Yes (Hospitalization)
  Sender: FDA-Public Use
  Company Number: FR-PFIZER INC-2012053164

PATIENT
  Age: 60 Year
  Sex: Female

DRUGS (8)
  1. ACETAMINOPHEN [Concomitant]
     Dosage: UNK
     Dates: start: 20110501
  2. CITALOPRAM [Concomitant]
     Dosage: UNK
     Dates: start: 20110901
  3. MUCOMYST [Concomitant]
     Dosage: UNK
     Dates: start: 20111201
  4. MOTILIUM [Suspect]
     Dosage: UNK
     Route: 048
     Dates: start: 20111228, end: 20120118
  5. ATARAX [Suspect]
     Dosage: UNK
     Dates: start: 20100913, end: 20120118
  6. VITAMIN D [Concomitant]
     Dosage: 1 DF, MONTHLY
     Dates: end: 20120104
  7. VFEND [Suspect]
     Indication: ASPERGILLOSIS
     Dosage: 200 MG, 2X/DAY
     Dates: start: 20111128, end: 20120118
  8. FERROUS SULFATE TAB [Concomitant]
     Dosage: UNK
     Dates: start: 20111201

REACTIONS (4)
  - COLD SWEAT [None]
  - PALLOR [None]
  - MALAISE [None]
  - VENTRICULAR EXTRASYSTOLES [None]
